FAERS Safety Report 6741128-0 (Version None)
Quarter: 2010Q2

REPORT INFORMATION
  Report Type: 
  Country: None (occurrence: None)
  Receive Date: 20100526
  Receipt Date: 20100517
  Transmission Date: 20101027
  Serious: Yes (Hospitalization)
  Sender: FDA-Public Use
  Company Number: FR-ASTRAZENECA-2010SE22638

PATIENT
  Age: 71 Year
  Sex: Male

DRUGS (11)
  1. XYLOCAINE [Suspect]
     Route: 042
     Dates: start: 20090702, end: 20090702
  2. FENTANYL [Suspect]
     Dosage: 550 MG
     Route: 042
     Dates: start: 20090702, end: 20090702
  3. ISUPREL [Suspect]
     Dosage: 10 MGS
     Route: 042
     Dates: start: 20090702, end: 20090702
  4. HYPNOVEL [Suspect]
     Dosage: 50 MGS
     Route: 042
     Dates: start: 20090702, end: 20090702
  5. ADRENALINE [Suspect]
     Dosage: 1 MG
     Route: 042
     Dates: start: 20090702, end: 20090702
  6. ATROPINE [Suspect]
     Dosage: 1 MG
     Route: 042
     Dates: start: 20090702, end: 20090702
  7. REOPRO [Suspect]
     Dosage: 20 MGS
     Dates: start: 20090702, end: 20090702
  8. VOLUVEN [Suspect]
     Indication: ARTERIOGRAM CORONARY
     Route: 042
     Dates: start: 20090702, end: 20090702
  9. HEPARIN [Suspect]
     Indication: ARTERIOGRAM CORONARY
     Route: 042
     Dates: start: 20090702, end: 20090702
  10. DOBUTREX [Suspect]
     Route: 042
     Dates: start: 20090702, end: 20090704
  11. NIMBEX [Suspect]
     Route: 042
     Dates: start: 20090702, end: 20090702

REACTIONS (1)
  - THROMBOCYTOPENIA [None]
